FAERS Safety Report 6396469-6 (Version None)
Quarter: 2009Q4

REPORT INFORMATION
  Report Type: 
  Country: None (occurrence: None)
  Receive Date: 20091012
  Receipt Date: 20090910
  Transmission Date: 20100525
  Serious: No
  Sender: FDA-Public Use
  Company Number: US-BAYER-200932758NA

PATIENT
  Age: 75 Year
  Sex: Male
  Weight: 62 kg

DRUGS (6)
  1. VARDENAFIL HYDROCHLORIDE [Suspect]
     Indication: ERECTILE DYSFUNCTION
  2. ALFUZOSIN HCL [Suspect]
     Indication: BENIGN PROSTATIC HYPERPLASIA
     Route: 048
  3. METOPROLOL [Concomitant]
     Indication: CARDIAC FAILURE
  4. LISINOPRIL [Concomitant]
  5. AMIODARONE [Concomitant]
     Indication: VENTRICULAR EXTRASYSTOLES
     Dates: start: 20080901
  6. ATORVASTATIN CALCIUM [Concomitant]

REACTIONS (1)
  - ORTHOSTATIC HYPOTENSION [None]
